FAERS Safety Report 6094630-1 (Version None)
Quarter: 2009Q1

REPORT INFORMATION
  Report Type: 
  Country: None (occurrence: None)
  Receive Date: 20090226
  Receipt Date: 20090220
  Transmission Date: 20090719
  Serious: Yes (Hospitalization, Other)
  Sender: FDA-Public Use
  Company Number: PHEH2009US01907

PATIENT
  Sex: Male
  Weight: 90.703 kg

DRUGS (2)
  1. NEORAL [Suspect]
     Indication: HEART TRANSPLANT
     Dosage: 125 MG, BID
     Dates: start: 19970922, end: 20090101
  2. GENGRAF [Suspect]
     Indication: HEART TRANSPLANT
     Dosage: UNK
     Dates: start: 20090101

REACTIONS (5)
  - CEREBROVASCULAR ACCIDENT [None]
  - FACIAL BONES FRACTURE [None]
  - FALL [None]
  - SURGERY [None]
  - TRANSIENT ISCHAEMIC ATTACK [None]
